FAERS Safety Report 12982845 (Version 1)
Quarter: 2016Q4

REPORT INFORMATION
  Report Type: Report from Study
  Country: US (occurrence: US)
  Receive Date: 20161129
  Receipt Date: 20161129
  Transmission Date: 20170207
  Serious: Yes (Hospitalization, Other)
  Sender: FDA-Public Use
  Company Number: US-BIOGEN-2016BI00323082

PATIENT
  Age: 74 Year
  Sex: Female

DRUGS (1)
  1. TECFIDERA [Suspect]
     Active Substance: DIMETHYL FUMARATE
     Indication: MULTIPLE SCLEROSIS
     Route: 065
     Dates: start: 20140827

REACTIONS (4)
  - Cerebrovascular accident [Unknown]
  - Infarction [Unknown]
  - Shoulder arthroplasty [Unknown]
  - Cardiac monitoring abnormal [Not Recovered/Not Resolved]

NARRATIVE: CASE EVENT DATE: 20150810
